FAERS Safety Report 7744035-X (Version None)
Quarter: 2011Q3

REPORT INFORMATION
  Report Type: 
  Country: None (occurrence: None)
  Receive Date: 20110819
  Receipt Date: 20110622
  Transmission Date: 20111222
  Serious: No
  Sender: FDA-Public Use
  Company Number: 035920

PATIENT
  Age: 44 Year
  Sex: Female

DRUGS (2)
  1. LACOSAMIDE [Suspect]
  2. LEVETIRACETAM [Suspect]

REACTIONS (1)
  - CONVULSION [None]
